FAERS Safety Report 6839231-X (Version None)
Quarter: 2010Q3

REPORT INFORMATION
  Report Type: 
  Country: None (occurrence: None)
  Receive Date: 20100714
  Receipt Date: 20100702
  Transmission Date: 20110219
  Serious: Yes (Hospitalization, Other)
  Sender: FDA-Public Use
  Company Number: US-JNJFOC-20100305637

PATIENT
  Sex: Female

DRUGS (3)
  1. LEVAQUIN [Suspect]
     Indication: PNEUMONIA
     Route: 048
  2. LEVAQUIN [Suspect]
     Indication: KNEE OPERATION
     Route: 048
  3. LEVAQUIN [Suspect]
     Indication: CHRONIC SINUSITIS
     Route: 048

REACTIONS (3)
  - MENISCUS LESION [None]
  - ROTATOR CUFF SYNDROME [None]
  - TENDON RUPTURE [None]
